FAERS Safety Report 9283795 (Version 2)
Quarter: 2013Q2

REPORT INFORMATION
  Report Type: Spontaneous
  Country: US (occurrence: US)
  Receive Date: 20130510
  Receipt Date: 20130612
  Transmission Date: 20140414
  Serious: No
  Sender: FDA-Public Use
  Company Number: US-ELI_LILLY_AND_COMPANY-US201305001687

PATIENT
  Sex: Female

DRUGS (4)
  1. ADCIRCA [Suspect]
     Dosage: 20 MG, QD
  2. ADCIRCA [Suspect]
     Dosage: 40 MG, QD
  3. ADCIRCA [Suspect]
     Dosage: 20 MG, QD
  4. OXYGEN [Concomitant]

REACTIONS (3)
  - Dyspnoea [Recovered/Resolved]
  - Malaise [Recovered/Resolved]
  - Cough [Recovered/Resolved]
